FAERS Safety Report 7426336-8 (Version None)
Quarter: 2011Q2

REPORT INFORMATION
  Report Type: 
  Country: None (occurrence: None)
  Receive Date: 20110420
  Receipt Date: 20110414
  Transmission Date: 20111010
  Serious: Yes (Hospitalization)
  Sender: FDA-Public Use
  Company Number: B0713715A

PATIENT
  Sex: Female
  Weight: 63 kg

DRUGS (20)
  1. TYKERB [Suspect]
     Indication: BREAST CANCER
     Dosage: 1250MG PER DAY
     Route: 048
     Dates: start: 20091116, end: 20100114
  2. MUCOSTA [Concomitant]
     Indication: CANCER PAIN
     Route: 048
     Dates: start: 20100124, end: 20100130
  3. GENTACIN [Concomitant]
     Indication: SKIN INFECTION
     Route: 061
     Dates: start: 20091116, end: 20100114
  4. THERADIA [Concomitant]
     Route: 061
     Dates: start: 20100118, end: 20100201
  5. FUROSEMIDE [Concomitant]
     Indication: PLEURAL EFFUSION
     Route: 048
     Dates: start: 20091116, end: 20100113
  6. FUROSEMIDE [Concomitant]
     Route: 048
     Dates: start: 20100126, end: 20100224
  7. ALDACTONE [Concomitant]
     Route: 048
     Dates: start: 20100126, end: 20100224
  8. OXYCONTIN [Concomitant]
     Indication: CANCER PAIN
     Route: 048
     Dates: start: 20100218, end: 20100221
  9. XELODA [Concomitant]
     Dosage: 2400MG PER DAY
     Route: 048
     Dates: start: 20071229, end: 20100114
  10. CRAVIT [Concomitant]
     Indication: SKIN INFECTION
     Route: 048
     Dates: start: 20100106, end: 20100114
  11. ALPROSTADIL [Concomitant]
     Indication: SKIN INFECTION
     Route: 061
     Dates: start: 20091214, end: 20091227
  12. ALDACTONE [Concomitant]
     Indication: PLEURAL EFFUSION
     Route: 048
     Dates: start: 20091116, end: 20100113
  13. DECADRON [Concomitant]
     Route: 048
     Dates: start: 20091116, end: 20100110
  14. DECADRON [Concomitant]
     Route: 048
     Dates: start: 20100118, end: 20100221
  15. FUROSEMIDE [Concomitant]
     Route: 042
     Dates: start: 20091116, end: 20100114
  16. PETROLATUM [Concomitant]
     Route: 061
     Dates: start: 20100202, end: 20100202
  17. MUCOSOLVAN [Concomitant]
     Route: 048
     Dates: start: 20091116, end: 20100119
  18. OXINORM [Concomitant]
     Indication: CANCER PAIN
     Route: 048
     Dates: start: 20100220, end: 20100221
  19. DERMOVATE [Concomitant]
     Route: 061
     Dates: start: 20100115, end: 20100118
  20. DUROTEP [Concomitant]
     Indication: CANCER PAIN
     Route: 048
     Dates: start: 20100221, end: 20100221

REACTIONS (1)
  - PLEURAL EFFUSION [None]
